FAERS Safety Report 19645408 (Version 1)
Quarter: 2021Q3

REPORT INFORMATION
  Report Type: Spontaneous
  Country: TW (occurrence: TW)
  Receive Date: 20210802
  Receipt Date: 20210802
  Transmission Date: 20211014
  Serious: Yes (Other)
  Sender: FDA-Public Use
  Company Number: TW-ACCORD-233759

PATIENT
  Age: 20 Year
  Sex: Female

DRUGS (3)
  1. BUPROPION. [Suspect]
     Active Substance: BUPROPION
     Indication: MAJOR DEPRESSION
     Dosage: EXTENDED?RELEASE
  2. CYPROTERONE [Interacting]
     Active Substance: CYPROTERONE
     Indication: INTERMENSTRUAL BLEEDING
  3. ESTRADIOL. [Interacting]
     Active Substance: ESTRADIOL
     Indication: INTERMENSTRUAL BLEEDING
     Route: 048

REACTIONS (2)
  - Seizure [Recovered/Resolved]
  - Drug interaction [Unknown]
